FAERS Safety Report 5740959-3 (Version None)
Quarter: 2008Q2

REPORT INFORMATION
  Report Type: 
  Country: None (occurrence: None)
  Receive Date: 20080516
  Receipt Date: 20080505
  Transmission Date: 20081010
  Serious: Yes (Other)
  Sender: FDA-Public Use
  Company Number: US-PFIZER INC-2008027394

PATIENT
  Sex: Female
  Weight: 69.4 kg

DRUGS (11)
  1. LYRICA [Suspect]
     Indication: COMPLEX REGIONAL PAIN SYNDROME
     Route: 048
     Dates: start: 20070501, end: 20080301
  2. LYRICA [Suspect]
     Indication: NEUROPATHY PERIPHERAL
  3. VALIUM [Concomitant]
  4. ALL OTHER THERAPEUTIC PRODUCTS [Concomitant]
  5. ZOLOFT [Concomitant]
  6. ZYRTEC [Concomitant]
  7. CATAPRES [Concomitant]
  8. HYDROXYZINE [Concomitant]
  9. PRILOSEC [Concomitant]
  10. MIDODRINE [Concomitant]
  11. ATARAX [Concomitant]

REACTIONS (6)
  - FLUID RETENTION [None]
  - OEDEMA PERIPHERAL [None]
  - PAIN IN EXTREMITY [None]
  - PULMONARY HYPERTENSION [None]
  - SWELLING FACE [None]
  - WEIGHT INCREASED [None]
